FAERS Safety Report 9492542 (Version 1)
Quarter: 2013Q3

REPORT INFORMATION
  Report Type: Report from Study
  Country: US (occurrence: US)
  Receive Date: 20130830
  Receipt Date: 20130830
  Transmission Date: 20140515
  Serious: Yes (Other)
  Sender: FDA-Public Use
  Company Number: US-ABBOTT-13P-163-1137047-00

PATIENT
  Age: 60 Year
  Sex: Female

DRUGS (2)
  1. HUMIRA [Suspect]
     Indication: PSORIATIC ARTHROPATHY
     Dates: start: 201304
  2. HUMIRA [Suspect]
     Dates: start: 201307

REACTIONS (3)
  - Lacrimal duct neoplasm [Not Recovered/Not Resolved]
  - Injection site vesicles [Unknown]
  - Incorrect dose administered [Unknown]
